FAERS Safety Report 12804761 (Version 1)
Quarter: 2016Q4

REPORT INFORMATION
  Report Type: Spontaneous
  Country: US (occurrence: US)
  Receive Date: 20161003
  Receipt Date: 20161003
  Transmission Date: 20170207
  Serious: No
  Sender: FDA-Public Use
  Company Number: US-ASTRAZENECA-2016SF01451

PATIENT
  Age: 63 Year
  Sex: Female
  Weight: 77.1 kg

DRUGS (13)
  1. TRAZODONE [Concomitant]
     Active Substance: TRAZODONE HYDROCHLORIDE
     Indication: SLEEP DISORDER
     Dosage: 100MG, TAKES 2 TO 2 AND A HALF TABLETS AT BEDTIME DAILY
  2. OMEPRAZOLE. [Suspect]
     Active Substance: OMEPRAZOLE
     Indication: ABDOMINAL DISCOMFORT
     Route: 048
     Dates: start: 2009
  3. LYRICA [Suspect]
     Active Substance: PREGABALIN
     Indication: BURNING SENSATION
     Route: 048
     Dates: start: 200602
  4. OXYBUTIN [Concomitant]
     Active Substance: OXYBUTYNIN
     Indication: BLADDER DISORDER
     Dosage: 5MG TWICE A DAY
     Dates: start: 2009
  5. BUSPIRONE [Concomitant]
     Active Substance: BUSPIRONE HYDROCHLORIDE
     Indication: NEURALGIA
     Dosage: 15MG,2 TABLETS TWICE A DAY AS NEEDED
  6. NORCO [Concomitant]
     Active Substance: ACETAMINOPHEN\HYDROCODONE BITARTRATE
     Indication: PAIN
     Dosage: 7.5MG/325MG 1 PILL 4 TIMES A DAY,
  7. KEFLEX [Concomitant]
     Active Substance: CEPHALEXIN
     Indication: INFECTION
     Dosage: 500MG, 1 PILL EVERY 6 HOURS
     Dates: start: 201605
  8. PROPRANOLOL [Concomitant]
     Active Substance: PROPRANOLOL\PROPRANOLOL HYDROCHLORIDE
     Indication: TREMOR
     Dosage: 10MG, 1 EVERY 6 HOURS
     Dates: start: 20160728
  9. VENLAFAXINE ER [Concomitant]
     Active Substance: VENLAFAXINE HYDROCHLORIDE
     Indication: ANTIDEPRESSANT THERAPY
     Dosage: 75MG, 2 AT NIGHT
  10. LASIX [Concomitant]
     Active Substance: FUROSEMIDE
     Indication: BLADDER DISORDER
     Dosage: 20MG ONCE A WEEK AS NEEDED
     Dates: start: 201501
  11. POTASSIUM [Concomitant]
     Active Substance: POTASSIUM
     Indication: BLOOD POTASSIUM DECREASED
     Dosage: 1/2 TABLET OF 20MEQ TABLET ONE TIME A DAY
  12. LEVOCETIRIZINE [Concomitant]
     Active Substance: LEVOCETIRIZINE
     Indication: RHINORRHOEA
     Dosage: 5MG ONE TIME A DAY OR AS NEEDED
  13. TIZANIDINE. [Concomitant]
     Active Substance: TIZANIDINE
     Indication: MUSCLE RELAXANT THERAPY
     Dosage: 4MG , 1 TABLET EVERY 8 TO 12 HOURS AS NEEDED
     Dates: start: 20160728

REACTIONS (8)
  - Renal disorder [Not Recovered/Not Resolved]
  - Gastric disorder [Not Recovered/Not Resolved]
  - Burning sensation [Not Recovered/Not Resolved]
  - Anxiety [Not Recovered/Not Resolved]
  - Sleep disorder [Not Recovered/Not Resolved]
  - Breast mass [Unknown]
  - Tremor [Not Recovered/Not Resolved]
  - Bladder disorder [Not Recovered/Not Resolved]

NARRATIVE: CASE EVENT DATE: 2009
